FAERS Safety Report 26083512 (Version 1)
Quarter: 2025Q4

REPORT INFORMATION
  Report Type: Spontaneous
  Country: US (occurrence: None)
  Receive Date: 20251124
  Receipt Date: 20251124
  Transmission Date: 20260117
  Serious: Yes (Other)
  Sender: FDA-CTU
  Company Number: None

PATIENT
  Age: 53 Year
  Sex: Female
  Weight: 61.65 kg

DRUGS (9)
  1. MIEBO [Suspect]
     Active Substance: PERFLUOROHEXYLOCTANE
     Indication: Dry eye
     Dosage: FREQUENCY : 4 TIMES A DAY;?
     Route: 047
     Dates: start: 20251107, end: 20251121
  2. BUPROPION [Concomitant]
     Active Substance: BUPROPION
  3. DULOXETINE [Concomitant]
     Active Substance: DULOXETINE
  4. LORAZEPAM [Concomitant]
     Active Substance: LORAZEPAM
  5. ADDERALL [Concomitant]
     Active Substance: AMPHETAMINE ASPARTATE\AMPHETAMINE SULFATE\DEXTROAMPHETAMINE SACCHARATE\DEXTROAMPHETAMINE SULFATE
  6. TRAZODONE [Concomitant]
     Active Substance: TRAZODONE HYDROCHLORIDE
  7. TOPIRAMATE [Concomitant]
     Active Substance: TOPIRAMATE
  8. VITAMIN D [Concomitant]
     Active Substance: VITAMIN D NOS
  9. BIOTIN [Concomitant]
     Active Substance: BIOTIN

REACTIONS (9)
  - Instillation site pain [None]
  - Headache [None]
  - Rash [None]
  - Abdominal pain upper [None]
  - Abdominal distension [None]
  - Dizziness [None]
  - Gait disturbance [None]
  - Panic attack [None]
  - Therapy cessation [None]

NARRATIVE: CASE EVENT DATE: 20251121
